FAERS Safety Report 4475272-8 (Version None)
Quarter: 2004Q4

REPORT INFORMATION
  Report Type: 
  Country: None (occurrence: None)
  Receive Date: 20041013
  Receipt Date: 20041013
  Transmission Date: 20050328
  Serious: Yes (Hospitalization)
  Sender: FDA-Public Use
  Company Number: None

PATIENT
  Age: 10 Year
  Sex: Female
  Weight: 34.8 kg

DRUGS (9)
  1. ATOMOXETINE [Suspect]
     Indication: ATTENTION DEFICIT/HYPERACTIVITY DISORDER
     Dosage: 40MG DAILY PO
     Route: 048
  2. TYLENOL [Concomitant]
  3. KEFLEX [Concomitant]
  4. ATARAX [Concomitant]
  5. HYDROCORTISONE CREAM [Concomitant]
  6. CALADRYL [Concomitant]
  7. DECADRON [Concomitant]
  8. CLARITIN [Concomitant]
  9. STRATTERA [Concomitant]

REACTIONS (7)
  - CIRCULATORY COLLAPSE [None]
  - HYPERTENSION [None]
  - RASH MACULO-PAPULAR [None]
  - RASH PRURITIC [None]
  - SKIN LACERATION [None]
  - SYNCOPE [None]
  - TACHYCARDIA [None]
